FAERS Safety Report 6683616-1 (Version None)
Quarter: 2010Q2

REPORT INFORMATION
  Report Type: 
  Country: None (occurrence: None)
  Receive Date: 20100412
  Receipt Date: 20090731
  Transmission Date: 20101027
  Serious: No
  Sender: FDA-Public Use
  Company Number: 2009-00432

PATIENT
  Age: 55 Year
  Sex: Male
  Weight: 90.7194 kg

DRUGS (3)
  1. ZICAM COLD REMEDY NASAL GEL [Suspect]
     Dosage: (?) - FOR A WHOLE YEAR^ : 8-9 YRS AGO-7-8 YRS AGO
  2. TRICOR [Concomitant]
  3. LOPID [Concomitant]

REACTIONS (1)
  - ANOSMIA [None]
